FAERS Safety Report 4763000-8 (Version None)
Quarter: 2005Q3

REPORT INFORMATION
  Report Type: 
  Country: None (occurrence: None)
  Receive Date: 20050826
  Receipt Date: 20041022
  Transmission Date: 20060218
  Serious: Yes (Other)
  Sender: FDA-Public Use
  Company Number: USA-2004-0017370

PATIENT
  Sex: Male

DRUGS (5)
  1. OXYCONTIN [Suspect]
  2. MORPHINE SULFATE [Suspect]
  3. METHADONE HCL [Suspect]
  4. VICODIN [Suspect]
  5. RITALIN [Suspect]

REACTIONS (1)
  - POLYSUBSTANCE ABUSE [None]
